FAERS Safety Report 5155111-2 (Version None)
Quarter: 2006Q4

REPORT INFORMATION
  Report Type: 
  Country: None (occurrence: None)
  Receive Date: 20061121
  Receipt Date: 20061101
  Transmission Date: 20070319
  Serious: Yes (Hospitalization)
  Sender: FDA-Public Use
  Company Number: PHNR2006AU01486

PATIENT
  Age: 45 Year
  Sex: Male

DRUGS (6)
  1. GLEEVEC [Suspect]
     Indication: CHRONIC MYELOID LEUKAEMIA
     Dates: end: 20061101
  2. GLICLAZIDE [Concomitant]
     Dosage: 40 MG, BID
  3. FELODIPINE [Concomitant]
     Dosage: 20 MG, UNK
  4. ATORVASTATIN CALCIUM [Concomitant]
     Dosage: 20 MG TAKEN AT NIGHTIME
  5. PERINDOPRIL ERBUMINE [Concomitant]
  6. ALLOPURINOL [Concomitant]
     Dosage: 100 MG, UNK

REACTIONS (3)
  - ANAEMIA [None]
  - GASTRIC ANTRAL VASCULAR ECTASIA [None]
  - GASTROINTESTINAL HAEMORRHAGE [None]
